FAERS Safety Report 8345090-9 (Version None)
Quarter: 2012Q2

REPORT INFORMATION
  Report Type: 
  Country: None (occurrence: None)
  Receive Date: 20120508
  Receipt Date: 20120501
  Transmission Date: 20120825
  Serious: No
  Sender: FDA-Public Use
  Company Number: US-BAYER-2012-043022

PATIENT
  Age: 31 Year
  Sex: Female
  Weight: 59 kg

DRUGS (4)
  1. NAPROXEN SODIUM [Suspect]
     Dosage: 2 U, PRN
     Route: 048
     Dates: start: 20120429, end: 20120501
  2. CALCIUM [Concomitant]
  3. BENTYL [Concomitant]
  4. LORTAB [Concomitant]

REACTIONS (1)
  - ANALGESIC THERAPY [None]
